FAERS Safety Report 8916893 (Version 2)
Quarter: 2012Q4

REPORT INFORMATION
  Report Type: 
  Country: JP (occurrence: JP)
  Receive Date: 20121120
  Receipt Date: 20121211
  Transmission Date: 20130627
  Serious: Yes (Death, Other)
  Sender: FDA-Public Use
  Company Number: JP-ROCHE-1157088

PATIENT
  Age: 47 Year
  Sex: Male

DRUGS (10)
  1. AVASTIN [Suspect]
     Indication: SMALL INTESTINE CARCINOMA RECURRENT
     Dosage: Dosage is uncertain.
     Route: 041
  2. AVASTIN [Suspect]
     Indication: OFF LABEL USE
     Dosage: Dosage is uncertain.
     Route: 041
  3. OXALIPLATIN [Concomitant]
     Indication: SMALL INTESTINE CARCINOMA RECURRENT
     Dosage: Dosage is uncertain.
     Route: 041
  4. 5-FU [Concomitant]
     Indication: SMALL INTESTINE CARCINOMA RECURRENT
     Dosage: Dosage is uncertain.
     Route: 040
  5. 5-FU [Concomitant]
     Indication: SMALL INTESTINE CARCINOMA RECURRENT
     Dosage: Dosage is uncertain.
     Route: 041
  6. 5-FU [Concomitant]
     Indication: SMALL INTESTINE CARCINOMA RECURRENT
     Dosage: Dosage is uncertain.
     Route: 040
  7. 5-FU [Concomitant]
     Indication: SMALL INTESTINE CARCINOMA RECURRENT
     Dosage: Dosage is uncertain.
     Route: 041
  8. LEVOFOLINATE [Concomitant]
     Indication: SMALL INTESTINE CARCINOMA RECURRENT
     Dosage: Dosage is uncertain.
     Route: 041
  9. LEVOFOLINATE [Concomitant]
     Indication: SMALL INTESTINE CARCINOMA RECURRENT
     Dosage: Dosage is uncertain.
     Route: 041
  10. IRINOTECAN [Concomitant]
     Indication: SMALL INTESTINE CARCINOMA RECURRENT
     Dosage: Dosage is uncertain.
     Route: 041

REACTIONS (2)
  - Disease progression [Fatal]
  - Intestinal obstruction [Unknown]
